FAERS Safety Report 6532053-9 (Version None)
Quarter: 2010Q1

REPORT INFORMATION
  Report Type: 
  Country: None (occurrence: None)
  Receive Date: 20100107
  Receipt Date: 20100107
  Transmission Date: 20100710
  Serious: Yes (Hospitalization)
  Sender: FDA-Public Use
  Company Number: None

PATIENT
  Sex: Male
  Weight: 58 kg

DRUGS (2)
  1. XELODA [Suspect]
     Dosage: 36000 MG
  2. ELOXATIN [Suspect]
     Dosage: 344 MG

REACTIONS (1)
  - LYMPHOPENIA [None]
